FAERS Safety Report 17230279 (Version 1)
Quarter: 2020Q1

REPORT INFORMATION
  Report Type: Spontaneous
  Country: US (occurrence: US)
  Receive Date: 20200103
  Receipt Date: 20200103
  Transmission Date: 20200409
  Serious: Yes (Other)
  Sender: FDA-Public Use
  Company Number: US-TEVA-2019-US-1161941

PATIENT

DRUGS (2)
  1. ZYPREXA [Concomitant]
     Active Substance: OLANZAPINE
     Dosage: FORM STRENGTH UNKNOWN
     Route: 065
  2. PROVIGIL [Suspect]
     Active Substance: MODAFINIL
     Dosage: FORM STRENGTH AND UNIT DOSE UNKNOWN
     Route: 065

REACTIONS (3)
  - Therapeutic response decreased [Unknown]
  - Expired product administered [Unknown]
  - Loss of personal independence in daily activities [Unknown]
